FAERS Safety Report 6767311-6 (Version None)
Quarter: 2010Q2

REPORT INFORMATION
  Report Type: 
  Country: None (occurrence: None)
  Receive Date: 20100614
  Receipt Date: 20100601
  Transmission Date: 20101027
  Serious: Yes (Hospitalization, Other)
  Sender: FDA-Public Use
  Company Number: CH-CELGENEUS-151-C5013-10041417

PATIENT
  Sex: Male
  Weight: 68.7 kg

DRUGS (31)
  1. THALIDOMIDE [Suspect]
     Indication: MULTIPLE MYELOMA
     Route: 048
     Dates: start: 20100315, end: 20100412
  2. THALIDOMIDE [Suspect]
     Route: 048
     Dates: start: 20100426
  3. PREDNISONE [Suspect]
     Indication: MULTIPLE MYELOMA
     Route: 065
     Dates: start: 20100315, end: 20100318
  4. PREDNISONE [Suspect]
     Route: 065
     Dates: start: 20100426, end: 20100429
  5. MELPHALAN HYDROCHLORIDE [Suspect]
     Indication: MULTIPLE MYELOMA
     Route: 065
     Dates: start: 20100315, end: 20100318
  6. MELPHALAN HYDROCHLORIDE [Suspect]
     Route: 065
     Dates: start: 20100426, end: 20100429
  7. MORPHINE [Suspect]
     Indication: BONE PAIN
     Route: 048
     Dates: start: 20100322, end: 20100325
  8. MORPHINE [Suspect]
     Route: 048
     Dates: start: 20100326
  9. NEXIUM [Concomitant]
     Indication: PROPHYLAXIS
     Route: 048
     Dates: start: 20100315, end: 20100415
  10. NEXIUM [Concomitant]
     Route: 048
     Dates: start: 20100420
  11. TRAMAL [Concomitant]
     Indication: PAIN
     Route: 048
     Dates: start: 20100308, end: 20100322
  12. TRAMAL [Concomitant]
     Route: 048
     Dates: end: 20100307
  13. MS CONTIN [Concomitant]
     Indication: PAIN
     Route: 048
     Dates: start: 20100322, end: 20100325
  14. MS CONTIN [Concomitant]
     Route: 048
     Dates: start: 20100326, end: 20100425
  15. MS CONTIN [Concomitant]
     Route: 048
     Dates: start: 20100426
  16. ZOMETA [Concomitant]
     Indication: PROPHYLAXIS
     Route: 051
     Dates: start: 20100308
  17. SINTROM [Concomitant]
     Route: 065
     Dates: end: 20100416
  18. CLEXANE [Concomitant]
     Route: 058
     Dates: start: 20100416, end: 20100421
  19. FRAXIFORTE [Concomitant]
     Route: 058
     Dates: start: 20100422
  20. PRIMPERAN [Concomitant]
     Indication: DRUG USE FOR UNKNOWN INDICATION
     Route: 048
     Dates: start: 20100315
  21. ZOFRAN [Concomitant]
     Indication: DRUG USE FOR UNKNOWN INDICATION
     Route: 048
     Dates: start: 20100315
  22. DAFALGAN [Concomitant]
     Indication: DRUG USE FOR UNKNOWN INDICATION
     Route: 048
     Dates: end: 20100325
  23. TOREM [Concomitant]
     Indication: DRUG USE FOR UNKNOWN INDICATION
     Route: 048
     Dates: end: 20100411
  24. TOREM [Concomitant]
     Route: 048
     Dates: start: 20100412, end: 20100414
  25. TOREM [Concomitant]
     Route: 048
     Dates: start: 20100416
  26. SORTIS [Concomitant]
     Route: 048
  27. NULYTELY [Concomitant]
     Indication: DRUG USE FOR UNKNOWN INDICATION
     Route: 048
     Dates: start: 20100406, end: 20100415
  28. LORAZEPAM [Concomitant]
     Indication: DRUG USE FOR UNKNOWN INDICATION
     Route: 048
     Dates: start: 20100416
  29. BIPHOSPHONATE [Concomitant]
     Indication: DRUG USE FOR UNKNOWN INDICATION
     Route: 065
     Dates: start: 20100308
  30. KONAKION [Concomitant]
     Route: 048
  31. LMWH [Concomitant]
     Route: 065

REACTIONS (4)
  - CONSTIPATION [None]
  - DECREASED APPETITE [None]
  - DEHYDRATION [None]
  - GENERAL PHYSICAL HEALTH DETERIORATION [None]
